FAERS Safety Report 23568916 (Version 1)
Quarter: 2024Q1

REPORT INFORMATION
  Report Type: Report from Study
  Country: US (occurrence: US)
  Receive Date: 20240227
  Receipt Date: 20240227
  Transmission Date: 20240410
  Serious: No
  Sender: FDA-Public Use
  Company Number: US-ORG100014127-2023000760

PATIENT
  Age: 23 Year
  Sex: Female

DRUGS (4)
  1. LYSODREN [Suspect]
     Active Substance: MITOTANE
     Indication: Adrenal gland cancer
     Dosage: TAKE 1 TABLET BY MOUTH TWICE A DAY
     Dates: start: 20220826
  2. LYSODREN [Suspect]
     Active Substance: MITOTANE
     Indication: Adrenal gland cancer
     Dosage: THEN EVERY 4-5 DAYS INCREASE BY 1 TABLET TO 8 TABLETS DAILY AS DIRECTED BY PHYSICIAN
  3. LYSODREN [Suspect]
     Active Substance: MITOTANE
     Indication: Adrenal gland cancer
     Dosage: TAKE 4 TABLETS BY MOUTH THREE TIMES DAILY
  4. METOPIRONE [Suspect]
     Active Substance: METYRAPONE
     Indication: Adrenal gland cancer
     Dosage: TAKE 2 CAPSULES (500MG TOTAL) BY MOUTH THREE TIMES DAILY
     Route: 048
     Dates: start: 20230712, end: 20230914

REACTIONS (2)
  - Drug ineffective [Unknown]
  - Off label use [Unknown]

NARRATIVE: CASE EVENT DATE: 20230712
